FAERS Safety Report 6161812-X (Version None)
Quarter: 2009Q2

REPORT INFORMATION
  Report Type: 
  Country: None (occurrence: None)
  Receive Date: 20090421
  Receipt Date: 20090416
  Transmission Date: 20091009
  Serious: Yes (Life-Threatening)
  Sender: FDA-Public Use
  Company Number: FR-ROCHE-628074

PATIENT
  Sex: Male
  Weight: 57.5 kg

DRUGS (19)
  1. MIRCERA [Suspect]
     Dosage: AMOUNT REPORTED: 200 MCG/0.3 ML
     Route: 042
     Dates: start: 20090407, end: 20090407
  2. MIMPARA [Concomitant]
     Route: 048
     Dates: start: 20090307
  3. MIMPARA [Concomitant]
     Route: 048
  4. VENOFER [Concomitant]
     Route: 042
     Dates: start: 20090404
  5. VENOFER [Concomitant]
     Route: 042
  6. LASIX [Concomitant]
     Dosage: DRUG REPORTED: LASILIX 500
     Route: 048
     Dates: start: 20090203
  7. LASIX [Concomitant]
     Route: 048
  8. RENAGEL [Concomitant]
     Route: 048
     Dates: start: 20090307
  9. RENAGEL [Concomitant]
     Route: 048
  10. SPECIAFOLDINE [Concomitant]
     Route: 048
     Dates: start: 20090113
  11. SPECIAFOLDINE [Concomitant]
     Route: 048
  12. ZYLORIC [Concomitant]
     Dosage: DRUG REPORTED: ZYLORIC 100
     Route: 048
     Dates: start: 20090113
  13. ZYLORIC [Concomitant]
     Route: 048
  14. VITAMIN B-12 [Concomitant]
     Dosage: DRUG REPORTED: VITAMINE B12
     Route: 048
  15. VITAMIN B-12 [Concomitant]
     Route: 048
  16. DUPHALAC [Concomitant]
     Dosage: DOSE: 2 SACHETS A DAY
     Route: 048
     Dates: start: 20090228
  17. DUPHALAC [Concomitant]
     Route: 048
  18. SODIUM BICARBONATE [Concomitant]
     Dosage: PATIENT RECEIVED GELULES OF SODIUM BICARBONATE
     Route: 048
     Dates: start: 20090113
  19. SODIUM BICARBONATE [Concomitant]
     Route: 048

REACTIONS (3)
  - BLOOD PRESSURE DECREASED [None]
  - CHEST DISCOMFORT [None]
  - PRURITUS [None]
